FAERS Safety Report 8185001-2 (Version None)
Quarter: 2012Q1

REPORT INFORMATION
  Report Type: 
  Country: None (occurrence: None)
  Receive Date: 20120305
  Receipt Date: 20120301
  Transmission Date: 20120608
  Serious: No
  Sender: FDA-Public Use
  Company Number: US-BAYER-2012-021405

PATIENT
  Age: 49 Year
  Sex: Female

DRUGS (4)
  1. ALEVE (CAPLET) [Suspect]
  2. ANACIN [Concomitant]
  3. TYLENOL PM [Concomitant]
  4. MIGRAINE FORMULA [Concomitant]

REACTIONS (1)
  - DRUG INEFFECTIVE [None]
